FAERS Safety Report 21016109 (Version 2)
Quarter: 2022Q3

REPORT INFORMATION
  Report Type: Spontaneous
  Country: US (occurrence: US)
  Receive Date: 20220628
  Receipt Date: 20220706
  Transmission Date: 20221026
  Serious: No
  Sender: FDA-Public Use
  Company Number: US-LUPIN PHARMACEUTICALS INC.-2022-08848

PATIENT
  Sex: Male
  Weight: 70.748 kg

DRUGS (7)
  1. PHENELZINE [Suspect]
     Active Substance: PHENELZINE
     Indication: Depression
     Dosage: 15 MG, QID (4 TABLETS IN A DAY AND ONE TABLET WAS 15 MG)
     Route: 065
  2. PHENELZINE [Suspect]
     Active Substance: PHENELZINE
     Dosage: 15 MG, TID (3 TABLETS A DAY OR 45 MG A DAY)
     Route: 065
  3. GLUCOSAMINE [Concomitant]
     Active Substance: GLUCOSAMINE
     Indication: Product used for unknown indication
     Dosage: UNK
     Route: 065
  4. HERBALS\TURMERIC [Concomitant]
     Active Substance: HERBALS\TURMERIC
     Indication: Product used for unknown indication
     Dosage: UNK
     Route: 065
  5. TYLENOL [Concomitant]
     Active Substance: ACETAMINOPHEN
     Indication: Product used for unknown indication
     Dosage: UNK
     Route: 065
  6. VITAMIN D3 [Concomitant]
     Active Substance: CHOLECALCIFEROL
     Indication: Product used for unknown indication
     Dosage: UNK
     Route: 065
  7. PSYLLIUM [Concomitant]
     Active Substance: PLANTAGO SEED
     Indication: Product used for unknown indication
     Dosage: UNK
     Route: 065

REACTIONS (2)
  - Headache [Not Recovered/Not Resolved]
  - Constipation [Unknown]
